FAERS Safety Report 5279829-6 (Version None)
Quarter: 2007Q1

REPORT INFORMATION
  Report Type: 
  Country: None (occurrence: None)
  Receive Date: 20061218
  Receipt Date: 20060908
  Transmission Date: 20070707
  Serious: Yes (Other)
  Sender: FDA-Public Use
  Company Number: US200609002363

PATIENT
  Sex: Male

DRUGS (2)
  1. HUMULIN U [Suspect]
     Indication: DIABETES MELLITUS
     Dates: start: 19910101
  2. HUMULIN U [Suspect]
     Indication: DIABETES MELLITUS
     Dates: start: 19910101

REACTIONS (8)
  - ANGER [None]
  - BLOOD GLUCOSE DECREASED [None]
  - CONVULSION [None]
  - EYE ROLLING [None]
  - LOSS OF CONSCIOUSNESS [None]
  - SOMNOLENCE [None]
  - TONIC CLONIC MOVEMENTS [None]
  - TREMOR [None]
